FAERS Safety Report 14120236 (Version 2)
Quarter: 2017Q4

REPORT INFORMATION
  Report Type: Report from Study
  Country: US (occurrence: US)
  Receive Date: 20171024
  Receipt Date: 20171127
  Transmission Date: 20180321
  Serious: Yes (Other)
  Sender: FDA-Public Use
  Company Number: US-BAYER-2017-197477

PATIENT
  Age: 51 Year
  Sex: Female

DRUGS (2)
  1. STIVARGA [Suspect]
     Active Substance: REGORAFENIB
     Indication: COLON CANCER
     Dosage: 40 MG, TID
     Route: 048
     Dates: start: 2017, end: 20171005
  2. STIVARGA [Suspect]
     Active Substance: REGORAFENIB
     Indication: COLON CANCER
     Dosage: 120 MG DAILY
     Route: 048
     Dates: start: 2017, end: 2017

REACTIONS (8)
  - Blister [Recovering/Resolving]
  - Skin lesion [Recovering/Resolving]
  - Blister [Recovering/Resolving]
  - Pain [Recovering/Resolving]
  - Skin exfoliation [Recovering/Resolving]
  - Gait disturbance [Recovering/Resolving]
  - Off label use [None]
  - Skin lesion [None]

NARRATIVE: CASE EVENT DATE: 2017
